FAERS Safety Report 25670537 (Version 2)
Quarter: 2025Q4

REPORT INFORMATION
  Report Type: Spontaneous
  Country: US (occurrence: US)
  Receive Date: 20250812
  Receipt Date: 20251113
  Transmission Date: 20260117
  Serious: Yes (Other)
  Sender: AUROBINDO
  Company Number: US-AUROBINDO-AUR-APL-2025-040676

PATIENT
  Age: 30 Year
  Sex: Female

DRUGS (4)
  1. PREDNISONE [Suspect]
     Active Substance: PREDNISONE
     Indication: Netherton^s syndrome
     Dosage: UNK
     Route: 065
  2. FLUOCINONIDE [Concomitant]
     Active Substance: FLUOCINONIDE
     Indication: Product used for unknown indication
     Dosage: UNK UNK, TWO TIMES A DAY
     Route: 065
  3. DUPILUMAB [Concomitant]
     Active Substance: DUPILUMAB
     Indication: Product used for unknown indication
     Dosage: 600 MILLIGRAM
     Route: 065
  4. DUPILUMAB [Concomitant]
     Active Substance: DUPILUMAB
     Dosage: 300 MILLIGRAM
     Route: 065

REACTIONS (1)
  - Rebound effect [Recovering/Resolving]
